FAERS Safety Report 7574828-3 (Version None)
Quarter: 2011Q2

REPORT INFORMATION
  Report Type: 
  Country: None (occurrence: None)
  Receive Date: 20110627
  Receipt Date: 20080417
  Transmission Date: 20111010
  Serious: No
  Sender: FDA-Public Use
  Company Number: US-BAYER-200820503NA

PATIENT
  Sex: Male
  Weight: 93 kg

DRUGS (21)
  1. LIPITOR [Concomitant]
     Dosage: 40MG/ AT HOUR OF SLEEP
  2. TOPROL-XL [Concomitant]
     Dosage: 50 MG, QD
  3. VYTORIN [Concomitant]
     Dosage: 10/80 HOUR OF SLEEP
  4. SUCCINYLCHOLINE CHLORIDE [Concomitant]
  5. TRASYLOL [Suspect]
     Dosage: 50ML/HR INFUSION
     Route: 042
     Dates: start: 20061218, end: 20061218
  6. ZINACEF [Concomitant]
  7. ANAPLEX HD [BROMPHEN MAL,HYDROCOD BITARTR,PSEUDOEPH HCL] [Concomitant]
     Dosage: 2MG-1.67MG-5MG-5ML TWICE DAILY
  8. VERSED [Concomitant]
  9. MAGNESIUM SULFATE [Concomitant]
  10. LOTENSIN [Concomitant]
     Dosage: 40 MG, QD
  11. TRASYLOL [Suspect]
     Indication: CORONARY ARTERY BYPASS
     Dosage: 1 ML, ONCE
     Route: 042
     Dates: start: 20061218, end: 20061218
  12. LISINOPRIL [Concomitant]
     Dosage: 10 MG, QD
  13. CHLORPHENIRAMINE MALEATE [Concomitant]
     Dosage: UNK UNK, BID
  14. ACETYLSALICYLIC ACID SRT [Concomitant]
     Dosage: 325 MG, QD
  15. VIOXX [Concomitant]
     Dosage: AS NEEDED
  16. FENTANYL [Concomitant]
  17. ISOVUE-128 [Concomitant]
     Indication: CATHETERISATION CARDIAC
     Dosage: 370 ML, ONCE
     Dates: start: 20061213
  18. TRASYLOL [Suspect]
     Dosage: 250 ML OF LOADING DOSE
     Route: 042
     Dates: start: 20061218, end: 20061218
  19. PRILOSEC [Concomitant]
     Dosage: 20 MG, QD
  20. PLAVIX [Concomitant]
     Dosage: 75 MG, QD
  21. HEPARIN [Concomitant]

REACTIONS (2)
  - ILL-DEFINED DISORDER [None]
  - UNEVALUABLE EVENT [None]
